FAERS Safety Report 20967244 (Version 1)
Quarter: 2022Q2

REPORT INFORMATION
  Report Type: Spontaneous
  Country: US (occurrence: None)
  Receive Date: 20220615
  Receipt Date: 20220615
  Transmission Date: 20220721
  Serious: Yes (Hospitalization)
  Sender: FDA-Public Use
  Company Number: None

PATIENT
  Age: 55 Year
  Sex: Female
  Weight: 111.5 kg

DRUGS (2)
  1. HYDROMORPHONE [Suspect]
     Active Substance: HYDROMORPHONE
  2. CLONIDINE [Suspect]
     Active Substance: CLONIDINE

REACTIONS (4)
  - Fall [None]
  - Mental status changes [None]
  - Infusion related reaction [None]
  - Device malfunction [None]

NARRATIVE: CASE EVENT DATE: 20220614
